FAERS Safety Report 24314087 (Version 1)
Quarter: 2024Q3

REPORT INFORMATION
  Report Type: Other
  Country: US (occurrence: US)
  Receive Date: 20240912
  Receipt Date: 20240912
  Transmission Date: 20241017
  Serious: No
  Sender: SIGMA TAU
  Company Number: US-LEADIANT BIOSCIENCES, INC.-2024STPI000038

PATIENT
  Age: 36 Year
  Sex: Male
  Weight: 87.5 kg

DRUGS (3)
  1. MATULANE [Suspect]
     Active Substance: PROCARBAZINE HYDROCHLORIDE
     Indication: Oligodendroglioma
     Dosage: UNK
     Route: 048
     Dates: start: 20230708
  2. KEPPRA [Concomitant]
     Active Substance: LEVETIRACETAM
     Dosage: 500MG, BID
  3. LOMUSTINE [Concomitant]
     Active Substance: LOMUSTINE
     Indication: Oligodendroglioma
     Dosage: 180MG, ONCE EACH 42 DAY CYLCE

REACTIONS (1)
  - Pancytopenia [Recovered/Resolved]

NARRATIVE: CASE EVENT DATE: 20240201
